FAERS Safety Report 20070704 (Version 2)
Quarter: 2021Q4

REPORT INFORMATION
  Report Type: Spontaneous
  Country: US (occurrence: US)
  Receive Date: 20211115
  Receipt Date: 20211203
  Transmission Date: 20220303
  Serious: Yes (Other)
  Sender: FDA-Public Use
  Company Number: US-TEVA-2021-US-1976428

PATIENT
  Age: 22 Year
  Sex: Female
  Weight: 83 kg

DRUGS (8)
  1. AUSTEDO [Suspect]
     Active Substance: DEUTETRABENAZINE
     Indication: Intentional self-injury
     Dosage: 18 MILLIGRAM DAILY;
     Dates: start: 202003
  2. AUSTEDO [Suspect]
     Active Substance: DEUTETRABENAZINE
     Indication: Tourette^s disorder
     Dosage: 24 MILLIGRAM DAILY;
     Route: 065
  3. AUSTEDO [Suspect]
     Active Substance: DEUTETRABENAZINE
     Dosage: 36 MILLIGRAM DAILY;
     Route: 065
     Dates: start: 20210727
  4. AUSTEDO [Suspect]
     Active Substance: DEUTETRABENAZINE
     Dosage: 24 MILLIGRAM DAILY;
     Route: 065
     Dates: start: 202108
  5. CLOMIPRAMINE [Concomitant]
     Active Substance: CLOMIPRAMINE
     Dosage: 200 MILLIGRAM DAILY;
  6. KLONOPIN [Concomitant]
     Active Substance: CLONAZEPAM
     Dosage: 3 MILLIGRAM DAILY;
  7. DEPO-PROVERA [Concomitant]
     Active Substance: MEDROXYPROGESTERONE ACETATE
  8. DEPAKOTE [Concomitant]
     Active Substance: DIVALPROEX SODIUM
     Dosage: 500 MILLIGRAM DAILY;

REACTIONS (5)
  - Diabetes mellitus [Unknown]
  - Somnolence [Recovering/Resolving]
  - Dizziness [Recovering/Resolving]
  - Dysarthria [Recovering/Resolving]
  - Product use in unapproved indication [Unknown]
